FAERS Safety Report 4673197-6 (Version None)
Quarter: 2005Q2

REPORT INFORMATION
  Report Type: 
  Country: None (occurrence: None)
  Receive Date: 20050525
  Receipt Date: 20040604
  Transmission Date: 20051028
  Serious: No
  Sender: FDA-Public Use
  Company Number: US-GLAXOSMITHKLINE-A0513484A

PATIENT
  Age: 60 Year
  Sex: Female
  Weight: 67.7 kg

DRUGS (2)
  1. BACTROBAN [Suspect]
     Indication: BACTERIAL INFECTION
     Route: 061
     Dates: start: 20040601, end: 20040604
  2. SYNTHROID [Concomitant]
     Route: 048

REACTIONS (4)
  - ANOREXIA [None]
  - ERYTHEMA [None]
  - HYPOVENTILATION [None]
  - PRURITUS [None]
